FAERS Safety Report 9404160 (Version 1)
Quarter: 2013Q3

REPORT INFORMATION
  Report Type: Spontaneous
  Country: US (occurrence: None)
  Receive Date: 20130716
  Receipt Date: 20130716
  Transmission Date: 20140515
  Serious: No
  Sender: FDA-Public Use
  Company Number: None

PATIENT
  Age: 64 Year
  Sex: Female
  Weight: 83.92 kg

DRUGS (6)
  1. NITROFURANTOIN MONOHYDRATE [Suspect]
     Indication: URINARY TRACT INFECTION
     Route: 048
     Dates: start: 20130708, end: 20130711
  2. VALTREX [Concomitant]
  3. NAPROXYN [Concomitant]
  4. PRILOSEC [Concomitant]
  5. ONCE-A-DAY MULTIVITAMIN [Concomitant]
  6. VITAMIN B3 SUPPLEMENT [Concomitant]

REACTIONS (8)
  - Pyrexia [None]
  - Chills [None]
  - Asthenia [None]
  - Chest pain [None]
  - Headache [None]
  - Nausea [None]
  - Pruritus [None]
  - Somnolence [None]
